FAERS Safety Report 8927272 (Version 2)
Quarter: 2013Q1

REPORT INFORMATION
  Report Type: Spontaneous
  Country: US (occurrence: US)
  Receive Date: 20121127
  Receipt Date: 20130124
  Transmission Date: 20140127
  Serious: Yes (Hospitalization)
  Sender: FDA-Public Use
  Company Number: US-BAYER-2012-123758

PATIENT
  Age: 31 Year
  Sex: Female
  Weight: 90.7 kg

DRUGS (27)
  1. YASMIN [Suspect]
     Indication: CONTRACEPTION
     Dosage: 1 TABLET EVERYDAY
     Route: 048
     Dates: start: 2002, end: 2010
  2. YASMIN [Suspect]
     Indication: DYSMENORRHOEA
  3. OCELLA [Suspect]
     Indication: CONTRACEPTION
     Dosage: UNK
     Dates: start: 2010, end: 20120114
  4. OCELLA [Suspect]
     Indication: DYSMENORRHOEA
  5. ASTHMA MEDICATIONS [UNSPECIFIED] [Concomitant]
     Indication: ASTHMA
     Dosage: UNK
     Dates: start: 2008, end: 2012
  6. LOVAZA [Concomitant]
     Dosage: TWO CAPSULES TWICE DAILY
     Dates: start: 2011
  7. ATARAX [Concomitant]
     Indication: URTICARIA
     Dosage: UNK
     Dates: start: 2011
  8. FLONASE [Concomitant]
     Indication: ASTHMA
     Dosage: 50 MCG, TWICE DAILY
     Dates: start: 1993
  9. FLONASE [Concomitant]
     Indication: MULTIPLE ALLERGIES
  10. ALLEGRA [Concomitant]
     Indication: ASTHMA
     Dosage: UNK
     Dates: start: 1993
  11. ALLEGRA [Concomitant]
     Indication: MULTIPLE ALLERGIES
  12. ZYRTEC [Concomitant]
     Indication: ASTHMA
     Dosage: 20 MG, DAILY
     Route: 048
     Dates: start: 1993
  13. ZYRTEC [Concomitant]
     Indication: MULTIPLE ALLERGIES
  14. SINGULAIR [Concomitant]
     Indication: ASTHMA
     Dosage: 10 MG, DAILY
     Route: 048
     Dates: start: 1993
  15. SINGULAIR [Concomitant]
     Indication: MULTIPLE ALLERGIES
  16. VITAMIN D3 [Concomitant]
     Dosage: UNK
     Dates: start: 20111220
  17. VITAMIN E [Concomitant]
     Dosage: UNK
     Dates: start: 20111220
  18. VITAMIN B [Concomitant]
     Dosage: UNK
     Dates: start: 20111220
  19. VITAMIN C [Concomitant]
     Dosage: UNK
     Dates: start: 20111220
  20. HERBAL PRODUCTS [UNSPECIFIED] [Concomitant]
     Dosage: UNK
     Dates: start: 20111220
  21. PREDNISONE [Concomitant]
     Dosage: UNK
     Dates: start: 20111209, end: 20111219
  22. TYLENOL [Concomitant]
     Indication: ARTHRALGIA
     Dosage: 2 DAILY
     Dates: start: 201110, end: 201201
  23. VICODIN [Concomitant]
     Indication: PAIN
     Dosage: UNK
     Dates: start: 201110, end: 201201
  24. HYDROXYZINE [Concomitant]
     Indication: PRURITUS
     Dosage: 50 MG, 2 TO 3 TIMES DAILY PRN
     Route: 048
     Dates: start: 201110, end: 201201
  25. PERCOCET [Concomitant]
     Indication: PAIN
     Dosage: 5/325 MG 1 TABLETS EVERY 4 TO 6 HOURS AS NEEDED
     Dates: start: 20120114
  26. PROAIR HFA [Concomitant]
     Dosage: 2 INHALATIONS, EVERY 4 TO 6 HOURS AS NEEDED
     Dates: start: 20120114
  27. TRAZODONE [Concomitant]
     Dosage: 25 MG, DAILY HS

REACTIONS (5)
  - Pulmonary embolism [None]
  - Deep vein thrombosis [None]
  - Deep vein thrombosis [None]
  - Deep vein thrombosis [None]
  - Emotional distress [None]
